FAERS Safety Report 6402655-9 (Version None)
Quarter: 2009Q4

REPORT INFORMATION
  Report Type: 
  Country: None (occurrence: None)
  Receive Date: 20091009
  Receipt Date: 20090930
  Transmission Date: 20100525
  Serious: Yes (Life-Threatening, Hospitalization)
  Sender: FDA-Public Use
  Company Number: ADR34372009

PATIENT
  Age: 78 Year
  Sex: Female

DRUGS (10)
  1. CIPROFLOXACIN HYDROCHLORIDE [Suspect]
     Indication: PYREXIA
     Dosage: 1.5G, ORAL
     Route: 048
     Dates: start: 20080603, end: 20080610
  2. RITUXIMAB [Concomitant]
  3. DOXORUBICIN HCL [Concomitant]
  4. ALLOPURINOL [Concomitant]
  5. CYCLOPHOSPHAMIDE [Concomitant]
  6. LANSOPRAZOLE [Concomitant]
  7. METOCLOPRAMIDE [Concomitant]
  8. PREDNISOLONE [Concomitant]
  9. VINCRISTINE [Concomitant]
  10. ONDANSETRON [Concomitant]

REACTIONS (3)
  - DEHYDRATION [None]
  - PYREXIA [None]
  - RENAL FAILURE [None]
